FAERS Safety Report 18733579 (Version 2)
Quarter: 2021Q1

REPORT INFORMATION
  Report Type: Report from Study
  Country: JP (occurrence: JP)
  Receive Date: 20210113
  Receipt Date: 20210304
  Transmission Date: 20210419
  Serious: Yes (Death, Other)
  Sender: FDA-Public Use
  Company Number: JP-VIFOR (INTERNATIONAL) INC.-VIT-2017-09929

PATIENT
  Age: 45 Year
  Sex: Female
  Weight: 84 kg

DRUGS (23)
  1. VELPHORO [Suspect]
     Active Substance: SUCROFERRIC OXYHYDROXIDE
     Route: 048
     Dates: start: 20170414, end: 20171220
  2. HUMALOG [Concomitant]
     Active Substance: INSULIN LISPRO
     Dates: start: 20180209
  3. EPOETIN ALFA [Concomitant]
     Active Substance: ERYTHROPOIETIN
     Dates: start: 20180716
  4. VELPHORO [Suspect]
     Active Substance: SUCROFERRIC OXYHYDROXIDE
     Indication: CHRONIC KIDNEY DISEASE
     Route: 048
     Dates: start: 20170224, end: 20170413
  5. FEBURIC [Concomitant]
     Active Substance: FEBUXOSTAT
     Route: 048
     Dates: start: 20170816
  6. EPOETIN ALFA [Concomitant]
     Active Substance: ERYTHROPOIETIN
     Dates: start: 20170210, end: 20171013
  7. ALFAROL [Concomitant]
     Active Substance: ALFACALCIDOL
     Route: 048
     Dates: start: 20170217, end: 20170711
  8. ALFAROL [Concomitant]
     Active Substance: ALFACALCIDOL
     Route: 048
     Dates: start: 20171018
  9. AZILVA [Concomitant]
     Active Substance: AZILSARTAN KAMEDOXOMIL
     Route: 048
     Dates: end: 20171017
  10. NESP [Concomitant]
     Active Substance: DARBEPOETIN ALFA
     Dates: start: 20171016, end: 20180709
  11. ZETIA [Concomitant]
     Active Substance: EZETIMIBE
     Route: 048
     Dates: end: 20170815
  12. ROCALTROL [Concomitant]
     Active Substance: CALCITRIOL
     Route: 048
     Dates: start: 20170712, end: 20171017
  13. VELPHORO [Suspect]
     Active Substance: SUCROFERRIC OXYHYDROXIDE
     Route: 048
     Dates: start: 20180808
  14. ADALAT CC [Concomitant]
     Active Substance: NIFEDIPINE
     Route: 048
     Dates: start: 20180815
  15. AZOSEMIDE [Concomitant]
     Active Substance: AZOSEMIDE
     Route: 048
     Dates: end: 20171108
  16. FEBURIC [Concomitant]
     Active Substance: FEBUXOSTAT
     Route: 048
     Dates: end: 20170711
  17. AMLODIPINE [Concomitant]
     Active Substance: AMLODIPINE BESYLATE
     Route: 048
     Dates: end: 20170511
  18. VELPHORO [Suspect]
     Active Substance: SUCROFERRIC OXYHYDROXIDE
     Route: 048
     Dates: start: 20180416, end: 20180730
  19. HUMALOG [Concomitant]
     Active Substance: INSULIN LISPRO
     Dates: end: 20180208
  20. VELPHORO [Suspect]
     Active Substance: SUCROFERRIC OXYHYDROXIDE
     Indication: HYPERPHOSPHATAEMIA
     Route: 048
     Dates: start: 20170217, end: 20170223
  21. VELPHORO [Suspect]
     Active Substance: SUCROFERRIC OXYHYDROXIDE
     Route: 048
     Dates: start: 20180314, end: 20180403
  22. FEBURIC [Concomitant]
     Active Substance: FEBUXOSTAT
     Route: 048
     Dates: start: 20170712, end: 20170815
  23. EPADEL [Concomitant]
     Active Substance: ICOSAPENT
     Route: 048
     Dates: start: 20170816, end: 20180918

REACTIONS (13)
  - Thrombosis in device [Recovering/Resolving]
  - Condition aggravated [Recovering/Resolving]
  - Hypertension [Recovering/Resolving]
  - Constipation [Recovering/Resolving]
  - Hyperparathyroidism secondary [Recovering/Resolving]
  - Skin infection [Not Recovered/Not Resolved]
  - Acute myocardial infarction [Fatal]
  - Hyperphosphataemia [Recovering/Resolving]
  - Hyperglycaemia [Recovering/Resolving]
  - Pruritus [Not Recovered/Not Resolved]
  - Blood pressure increased [Recovering/Resolving]
  - Dyspepsia [Recovering/Resolving]
  - Blood triglycerides increased [Not Recovered/Not Resolved]

NARRATIVE: CASE EVENT DATE: 20170403
